FAERS Safety Report 6120056-8 (Version None)
Quarter: 2009Q1

REPORT INFORMATION
  Report Type: 
  Country: None (occurrence: None)
  Receive Date: 20090316
  Receipt Date: 20090310
  Transmission Date: 20090719
  Serious: Yes (Other)
  Sender: FDA-Public Use
  Company Number: US-WYE-H08537609

PATIENT
  Sex: Female

DRUGS (9)
  1. PREMPRO [Suspect]
  2. PROVERA [Suspect]
  3. CYCRIN [Suspect]
  4. PREMARIN [Suspect]
  5. PROMETRIUM [Suspect]
  6. ESTRIOL [Suspect]
  7. MPA [Suspect]
  8. PREMARIN [Suspect]
  9. ESTRACE [Suspect]

REACTIONS (1)
  - B-CELL LYMPHOMA [None]
